FAERS Safety Report 11732575 (Version 1)
Quarter: 2015Q4

REPORT INFORMATION
  Report Type: Spontaneous
  Country: US (occurrence: US)
  Receive Date: 20151110
  Receipt Date: 20151110
  Transmission Date: 20160304
  Serious: No
  Sender: FDA-Public Use
  Company Number: US-ELI_LILLY_AND_COMPANY-US201110003458

PATIENT
  Age: 79 Year
  Sex: Female
  Weight: 87.53 kg

DRUGS (1)
  1. FORTEO [Suspect]
     Active Substance: TERIPARATIDE
     Indication: OSTEOPOROSIS
     Dosage: 20 UG, QD
     Route: 058
     Dates: start: 20110804

REACTIONS (5)
  - Movement disorder [Unknown]
  - Injection site bruising [Recovered/Resolved]
  - Osteoarthritis [Unknown]
  - Hip surgery [Unknown]
  - Arthralgia [Unknown]
